FAERS Safety Report 9846716 (Version 1)
Quarter: 2014Q1

REPORT INFORMATION
  Report Type: Report from Study
  Country: CO (occurrence: CO)
  Receive Date: 20140127
  Receipt Date: 20140127
  Transmission Date: 20141002
  Serious: Yes (Other)
  Sender: FDA-Public Use
  Company Number: CO-ABBVIE-14P-036-1193484-00

PATIENT
  Age: 76 Year
  Sex: Female
  Weight: 75 kg

DRUGS (13)
  1. HUMIRA [Suspect]
     Indication: RHEUMATOID ARTHRITIS
     Route: 058
     Dates: start: 20090902, end: 20131218
  2. ATORVASTATIN [Concomitant]
     Indication: PRODUCT USED FOR UNKNOWN INDICATION
  3. AMLODIPINE [Concomitant]
     Indication: PRODUCT USED FOR UNKNOWN INDICATION
  4. ESOMEPRAZOLE [Concomitant]
     Indication: PRODUCT USED FOR UNKNOWN INDICATION
  5. LEFLUNOMIDE [Concomitant]
     Indication: PRODUCT USED FOR UNKNOWN INDICATION
  6. LOSARTAN [Concomitant]
     Indication: PRODUCT USED FOR UNKNOWN INDICATION
  7. LEVOTHYROXINE [Concomitant]
     Indication: PRODUCT USED FOR UNKNOWN INDICATION
  8. METOPROLOL [Concomitant]
     Indication: PRODUCT USED FOR UNKNOWN INDICATION
  9. PREDNISOLONE [Concomitant]
     Indication: PRODUCT USED FOR UNKNOWN INDICATION
  10. RIVAROXABAN [Concomitant]
     Indication: ANTICOAGULANT THERAPY
     Route: 048
  11. SUCRALFATE [Concomitant]
     Indication: PRODUCT USED FOR UNKNOWN INDICATION
  12. CARBOXYMETHYLCELLULOSE [Concomitant]
     Indication: PRODUCT USED FOR UNKNOWN INDICATION
  13. CALCITRIOL [Concomitant]
     Indication: PRODUCT USED FOR UNKNOWN INDICATION
     Dates: end: 201301

REACTIONS (8)
  - Inflammation [Recovering/Resolving]
  - Facial pain [Recovering/Resolving]
  - Tooth abscess [Unknown]
  - Foreign body [Unknown]
  - Inflammation [Unknown]
  - Facial pain [Unknown]
  - Post procedural haemorrhage [Unknown]
  - Purulent discharge [Unknown]
